FAERS Safety Report 5906015-6 (Version None)
Quarter: 2008Q4

REPORT INFORMATION
  Report Type: 
  Country: None (occurrence: None)
  Receive Date: 20081002
  Receipt Date: 20080923
  Transmission Date: 20090506
  Serious: Yes (Death)
  Sender: FDA-Public Use
  Company Number: US-KINGPHARMUSA00001-K200801132

PATIENT

DRUGS (2)
  1. SONATA [Interacting]
     Indication: SLEEP DISORDER
     Dosage: UNK, SINGLE DOSE AT 9:30 PM
     Route: 048
     Dates: start: 20000328, end: 20000328
  2. XANAX [Suspect]
     Indication: ANXIETY
     Dosage: ONCE AT 4PM + ONCE AT 8 PM
     Route: 048
     Dates: start: 20080328, end: 20080328

REACTIONS (2)
  - COMPLETED SUICIDE [None]
  - SPEECH DISORDER [None]
